FAERS Safety Report 9204024 (Version 1)
Quarter: 2013Q1

REPORT INFORMATION
  Report Type: Spontaneous
  Country: US (occurrence: None)
  Receive Date: 20130329
  Receipt Date: 20130329
  Transmission Date: 20140127
  Serious: No
  Sender: FDA-Public Use
  Company Number: None

PATIENT
  Age: 43 Year
  Sex: Male
  Weight: 111.13 kg

DRUGS (2)
  1. B-BRAUN INFUSOMAT SPACE PUMP [Suspect]
     Dosage: 1 HOUR PLUS
     Dates: start: 20130328, end: 20130328
  2. B-BRAUN INFUSOMAT SPACE PUMP [Suspect]
     Dosage: 1 HOUR PLUS
     Dates: start: 20130328, end: 20130328

REACTIONS (1)
  - Device malfunction [None]
